FAERS Safety Report 12462904 (Version 1)
Quarter: 2016Q2

REPORT INFORMATION
  Report Type: Spontaneous
  Country: US (occurrence: US)
  Receive Date: 20160614
  Receipt Date: 20160614
  Transmission Date: 20160815
  Serious: No
  Sender: FDA-Public Use
  Company Number: US-JNJFOC-20160528175

PATIENT
  Age: 74 Year
  Sex: Male
  Weight: 113.4 kg

DRUGS (3)
  1. INVOKAMET [Suspect]
     Active Substance: CANAGLIFLOZIN\METFORMIN HYDROCHLORIDE
     Indication: WEIGHT ABNORMAL
     Dosage: 150/500 MG
     Route: 048
     Dates: start: 201605
  2. INVOKAMET [Suspect]
     Active Substance: CANAGLIFLOZIN\METFORMIN HYDROCHLORIDE
     Indication: BLOOD GLUCOSE INCREASED
     Dosage: 150/500 MG
     Route: 048
     Dates: start: 201605
  3. INVOKAMET [Suspect]
     Active Substance: CANAGLIFLOZIN\METFORMIN HYDROCHLORIDE
     Indication: HYPERTENSION
     Dosage: 150/500 MG
     Route: 048
     Dates: start: 201605

REACTIONS (3)
  - Product use issue [Unknown]
  - Pollakiuria [Unknown]
  - Blood pressure decreased [Unknown]

NARRATIVE: CASE EVENT DATE: 201605
